FAERS Safety Report 8433185-0 (Version None)
Quarter: 2012Q2

REPORT INFORMATION
  Report Type: 
  Country: None (occurrence: None)
  Receive Date: 20120323
  Receipt Date: 20110826
  Transmission Date: 20120825
  Serious: Yes (Hospitalization)
  Sender: FDA-Public Use
  Company Number: 163-21880-11083286

PATIENT
  Age: 60 Year
  Sex: Female

DRUGS (5)
  1. KEPPRA [Concomitant]
  2. ONDANSETRON HCL (ONDASNSETRON HYDROCHLORIDE) [Concomitant]
  3. PREVACID [Concomitant]
  4. LENALIDOMIDE [Suspect]
     Indication: MULTIPLE MYELOMA
     Dosage: 10 MG, 21 CAPS, PO
     Route: 048
     Dates: start: 20110720
  5. ATIVAN [Concomitant]

REACTIONS (1)
  - INFECTION [None]
